FAERS Safety Report 12527549 (Version 7)
Quarter: 2019Q2

REPORT INFORMATION
  Report Type: Spontaneous
  Country: CA (occurrence: CA)
  Receive Date: 20160705
  Receipt Date: 20190507
  Transmission Date: 20190711
  Serious: Yes (Other)
  Sender: FDA-Public Use
  Company Number: CA-ROCHE-1626363

PATIENT
  Age: 60 Year
  Sex: Female

DRUGS (25)
  1. XOLAIR [Suspect]
     Active Substance: OMALIZUMAB
     Route: 058
     Dates: start: 20170426
  2. XOLAIR [Suspect]
     Active Substance: OMALIZUMAB
     Route: 058
     Dates: start: 20180731
  3. PROMETRIUM [Concomitant]
     Active Substance: PROGESTERONE
  4. XOLAIR [Suspect]
     Active Substance: OMALIZUMAB
     Route: 058
     Dates: start: 20170621
  5. ATACAND [Concomitant]
     Active Substance: CANDESARTAN CILEXETIL
     Indication: PRODUCT USED FOR UNKNOWN INDICATION
     Dosage: 8 MG, QD
     Route: 065
  6. VENTOLINE [SALBUTAMOL] [Concomitant]
     Active Substance: ALBUTEROL SULFATE
     Indication: PRODUCT USED FOR UNKNOWN INDICATION
     Dosage: UNK UNK, PRN
     Route: 065
  7. XOLAIR [Suspect]
     Active Substance: OMALIZUMAB
     Route: 058
     Dates: start: 20190306
  8. REACTINE [CETIRIZINE HYDROCHLORIDE] [Concomitant]
     Active Substance: CETIRIZINE HYDROCHLORIDE
     Indication: PRODUCT USED FOR UNKNOWN INDICATION
     Dosage: 20 MG, QD
     Route: 065
  9. XOLAIR [Suspect]
     Active Substance: OMALIZUMAB
     Route: 058
     Dates: start: 20180214
  10. ALVESCO [Concomitant]
     Active Substance: CICLESONIDE
     Indication: PRODUCT USED FOR UNKNOWN INDICATION
     Dosage: 2 DF (2 PUFFS DAILY)
     Route: 065
  11. CRESTOR [Concomitant]
     Active Substance: ROSUVASTATIN CALCIUM
     Indication: PRODUCT USED FOR UNKNOWN INDICATION
     Dosage: 10 MG, QD
     Route: 065
  12. PREMARIN [Concomitant]
     Active Substance: ESTROGENS, CONJUGATED
     Indication: PRODUCT USED FOR UNKNOWN INDICATION
     Dosage: 0.625 MG, QD
     Route: 065
  13. XOLAIR [Suspect]
     Active Substance: OMALIZUMAB
     Indication: ASTHMA
     Route: 058
     Dates: start: 20100930
  14. XOLAIR [Suspect]
     Active Substance: OMALIZUMAB
     Route: 058
     Dates: start: 20180925
  15. XOLAIR [Suspect]
     Active Substance: OMALIZUMAB
     Route: 058
     Dates: start: 20170621
  16. XOLAIR [Suspect]
     Active Substance: OMALIZUMAB
     Route: 058
     Dates: start: 20180508
  17. SINGULAIR [Concomitant]
     Active Substance: MONTELUKAST SODIUM
     Indication: PRODUCT USED FOR UNKNOWN INDICATION
     Dosage: 10 MG, QD
     Route: 065
  18. EFFEXOR [Concomitant]
     Active Substance: VENLAFAXINE HYDROCHLORIDE
     Indication: PRODUCT USED FOR UNKNOWN INDICATION
     Dosage: 225 MG, QD
     Route: 065
  19. PERCOCET [Concomitant]
     Active Substance: ACETAMINOPHEN\OXYCODONE HYDROCHLORIDE
     Indication: PAIN
     Route: 065
  20. XOLAIR [Suspect]
     Active Substance: OMALIZUMAB
     Route: 058
     Dates: start: 20101012
  21. TECTA [Concomitant]
     Active Substance: PANTOPRAZOLE MAGNESIUM
     Indication: PRODUCT USED FOR UNKNOWN INDICATION
     Dosage: UNK UNK, QD
     Route: 065
  22. XOLAIR [Suspect]
     Active Substance: OMALIZUMAB
     Route: 058
     Dates: start: 20170125
  23. XOLAIR [Suspect]
     Active Substance: OMALIZUMAB
     Route: 058
     Dates: start: 20170719
  24. XOLAIR [Suspect]
     Active Substance: OMALIZUMAB
     Route: 058
     Dates: start: 20190206
  25. ZOPICLONE [Concomitant]
     Active Substance: ZOPICLONE
     Indication: PRODUCT USED FOR UNKNOWN INDICATION
     Dosage: 7.5 MG, QD
     Route: 065

REACTIONS (15)
  - Sinusitis [Recovering/Resolving]
  - Respiratory tract infection [Unknown]
  - Cough [Unknown]
  - Blood pressure systolic increased [Unknown]
  - Asthma [Unknown]
  - Smoke sensitivity [Unknown]
  - Pruritus [Unknown]
  - Lip and/or oral cavity cancer [Recovered/Resolved]
  - Skin test positive [Unknown]
  - Respiratory tract congestion [Unknown]
  - Pain [Unknown]
  - Dyspnoea [Unknown]
  - Fatigue [Unknown]
  - Forced expiratory volume decreased [Unknown]
  - Post procedural infection [Unknown]

NARRATIVE: CASE EVENT DATE: 2013
